FAERS Safety Report 11935707 (Version 3)
Quarter: 2016Q2

REPORT INFORMATION
  Report Type: Spontaneous
  Country: US (occurrence: US)
  Receive Date: 20160121
  Receipt Date: 20160401
  Transmission Date: 20160815
  Serious: Yes (Other)
  Sender: FDA-Public Use
  Company Number: PHEH2016US001497

PATIENT
  Age: 61 Year
  Sex: Male
  Weight: 97.88 kg

DRUGS (3)
  1. PROMACTA [Suspect]
     Active Substance: ELTROMBOPAG OLAMINE
     Dosage: 75 MG, UNK
     Route: 048
     Dates: start: 201509
  2. PROMACTA [Suspect]
     Active Substance: ELTROMBOPAG OLAMINE
     Indication: IMMUNE THROMBOCYTOPENIC PURPURA
     Dosage: 3 DF, QD
     Route: 048
     Dates: start: 201508
  3. MARINOL [Concomitant]
     Active Substance: DRONABINOL
     Indication: PRODUCT USED FOR UNKNOWN INDICATION
     Route: 065

REACTIONS (22)
  - Contusion [Unknown]
  - Red blood cell count increased [Unknown]
  - Blood pressure increased [Unknown]
  - White blood cell count increased [Recovered/Resolved]
  - Platelet count decreased [Unknown]
  - Sciatica [Unknown]
  - Peripheral artery stenosis [Unknown]
  - Pruritus [Recovering/Resolving]
  - Ecchymosis [Unknown]
  - Body temperature decreased [Unknown]
  - Haematocrit increased [Unknown]
  - Blood glucose increased [Unknown]
  - Haemoglobin increased [Unknown]
  - Rash [Recovering/Resolving]
  - Back pain [Unknown]
  - Peripheral arterial occlusive disease [Recovering/Resolving]
  - Neutrophil count increased [Recovered/Resolved]
  - Body mass index increased [Unknown]
  - Localised infection [Recovering/Resolving]
  - Lymphocyte percentage decreased [Unknown]
  - Skin discolouration [Recovering/Resolving]
  - Rash papular [Recovering/Resolving]

NARRATIVE: CASE EVENT DATE: 20151125
